FAERS Safety Report 6830866-7 (Version None)
Quarter: 2010Q3

REPORT INFORMATION
  Report Type: 
  Country: None (occurrence: None)
  Receive Date: 20100709
  Receipt Date: 20100709
  Transmission Date: 20110219
  Serious: Yes (Hospitalization)
  Sender: FDA-Public Use
  Company Number: None

PATIENT
  Age: 62 Year
  Sex: Male

DRUGS (2)
  1. NAFCILLIN [Suspect]
     Indication: BACTERAEMIA
     Dosage: 2 GM OTHER IV
     Route: 042
     Dates: start: 20100127, end: 20100201
  2. PIPERACILLIN AND TAZOBACTAM [Suspect]
     Indication: BACTERAEMIA
     Dosage: 4.5 GM QID IV
     Route: 042
     Dates: start: 20100124, end: 20100127

REACTIONS (1)
  - TUBULOINTERSTITIAL NEPHRITIS [None]
